FAERS Safety Report 22004386 (Version 1)
Quarter: 2023Q1

REPORT INFORMATION
  Report Type: Spontaneous
  Country: NL (occurrence: NL)
  Receive Date: 20230217
  Receipt Date: 20230217
  Transmission Date: 20230418
  Serious: Yes (Other)
  Sender: FDA-Public Use
  Company Number: NL-LRB-00863631

PATIENT
  Sex: Female
  Weight: 89 kg

DRUGS (2)
  1. SERTRALINE HYDROCHLORIDE [Suspect]
     Active Substance: SERTRALINE HYDROCHLORIDE
     Indication: Depression
     Dosage: 1 DOSAGE FORM, ONCE A DAY(1X PER DAG)
     Route: 065
     Dates: start: 20220201
  2. ZOLMITRIPTAN [Concomitant]
     Active Substance: ZOLMITRIPTAN
     Indication: Product used for unknown indication
     Dosage: UNK
     Route: 065

REACTIONS (5)
  - Arrhythmia [Recovering/Resolving]
  - Chest discomfort [Unknown]
  - Extrasystoles [Unknown]
  - Hypertension [Not Recovered/Not Resolved]
  - Tachycardia [Unknown]
